FAERS Safety Report 4823453-3 (Version None)
Quarter: 2005Q4

REPORT INFORMATION
  Report Type: 
  Country: None (occurrence: None)
  Receive Date: 20051107
  Receipt Date: 20051028
  Transmission Date: 20060501
  Serious: Yes (Hospitalization, Other)
  Sender: FDA-Public Use
  Company Number: HQWYE300828OCT05

PATIENT
  Age: 59 Year
  Sex: Male

DRUGS (3)
  1. TRANGOREX (AMIODARONE, TABLET) [Suspect]
     Dosage: 200 MG 1X PER 1 DAY, ORAL
     Route: 048
     Dates: start: 20050101, end: 20050411
  2. CAPTOPRIL [Suspect]
     Dosage: 25 MG 1X PER 1 DAY, ORAL
     Route: 048
     Dates: start: 20050101, end: 20050415
  3. CELLCEPT [Suspect]
     Dosage: 1 G 1X PER 1 DAY, ORAL
     Route: 048
     Dates: start: 20030201, end: 20050411

REACTIONS (2)
  - LEUKOPENIA [None]
  - PYREXIA [None]
